FAERS Safety Report 5936800-6 (Version None)
Quarter: 2008Q4

REPORT INFORMATION
  Report Type: 
  Country: None (occurrence: None)
  Receive Date: 20081029
  Receipt Date: 20081015
  Transmission Date: 20090506
  Serious: Yes (Death)
  Sender: FDA-Public Use
  Company Number: 230658K08USA

PATIENT
  Sex: Female

DRUGS (2)
  1. REBIF [Suspect]
     Indication: MULTIPLE SCLEROSIS
     Dates: start: 20060101, end: 20070101
  2. COPAXONE [Suspect]
     Dates: start: 19980101, end: 20080423

REACTIONS (1)
  - LUNG NEOPLASM MALIGNANT [None]
